FAERS Safety Report 7121002-0 (Version None)
Quarter: 2010Q4

REPORT INFORMATION
  Report Type: 
  Country: None (occurrence: None)
  Receive Date: 20101124
  Receipt Date: 20100106
  Transmission Date: 20110411
  Serious: No
  Sender: FDA-Public Use
  Company Number: US-PFIZER INC-2010002840

PATIENT
  Sex: Female
  Weight: 52 kg

DRUGS (1)
  1. TIKOSYN [Suspect]
     Dosage: 500 MG, 2X/DAY
     Route: 048

REACTIONS (4)
  - ASTHENIA [None]
  - DIZZINESS [None]
  - NAUSEA [None]
  - VISION BLURRED [None]
